FAERS Safety Report 5235971-7 (Version None)
Quarter: 2007Q1

REPORT INFORMATION
  Report Type: 
  Country: None (occurrence: None)
  Receive Date: 20061208
  Receipt Date: 20060522
  Transmission Date: 20070707
  Serious: Yes (Other)
  Sender: FDA-Public Use
  Company Number: 2006UW09944

PATIENT
  Age: 67 Year
  Sex: Female
  Weight: 89.811 kg

DRUGS (5)
  1. CRESTOR [Suspect]
     Indication: BLOOD CHOLESTEROL INCREASED
     Dosage: 5 MG HS PO
     Route: 048
     Dates: start: 20060501, end: 20060501
  2. ATENOLOL [Concomitant]
  3. DYAZIDE [Concomitant]
  4. GLUCOTROL XL [Concomitant]
  5. ACTOS [Concomitant]

REACTIONS (3)
  - DEPRESSION [None]
  - INSOMNIA [None]
  - NIGHTMARE [None]
